FAERS Safety Report 8805849 (Version 1)
Quarter: 2012Q4

REPORT INFORMATION
  Report Type: Spontaneous
  Country: FR (occurrence: None)
  Receive Date: 20120917
  Receipt Date: 20120917
  Transmission Date: 20130627
  Serious: Yes (Hospitalization)
  Sender: FDA-Public Use
  Company Number: DSA_59612_2012

PATIENT
  Age: 72 Year
  Sex: Female

DRUGS (5)
  1. FLAGYL [Suspect]
     Indication: SEPSIS
     Dosage: (1.5 G; Daily Intravenous (not otherwise specified))
     Route: 042
     Dates: start: 20120712, end: 20120725
  2. TARGOCID [Suspect]
     Indication: SEPSIS
     Dosage: (800 mg; Intravenous (not otherwise specified))
     Route: 042
     Dates: start: 20120712, end: 20120725
  3. ROCEPHINE [Suspect]
     Indication: SEPSIS
     Dosage: (2 g; Daily intravenous (not otherwise specified))
     Route: 042
     Dates: start: 20120712, end: 20120725
  4. PREVISCAN [Suspect]
     Indication: THROMBOSIS PROPHYLAXIS
     Route: 048
     Dates: start: 20120713, end: 20120725
  5. LOVENOX [Concomitant]

REACTIONS (1)
  - Thrombocytopenia [None]
